FAERS Safety Report 7595477-7 (Version None)
Quarter: 2011Q3

REPORT INFORMATION
  Report Type: 
  Country: None (occurrence: None)
  Receive Date: 20110707
  Receipt Date: 20110701
  Transmission Date: 20111222
  Serious: Yes (Death)
  Sender: FDA-Public Use
  Company Number: US-ROCHE-787627

PATIENT
  Sex: Female

DRUGS (1)
  1. VALCYTE [Suspect]
     Route: 042

REACTIONS (1)
  - DEATH [None]
